FAERS Safety Report 10395300 (Version 2)
Quarter: 2014Q4

REPORT INFORMATION
  Report Type: Spontaneous
  Country: US (occurrence: None)
  Receive Date: 20140818
  Receipt Date: 20141229
  Transmission Date: 20150528
  Serious: Yes (Other)
  Sender: FDA-Public Use
  Company Number: 2014-US-009912

PATIENT
  Age: 63 Year
  Sex: Female

DRUGS (2)
  1. XYREM [Suspect]
     Active Substance: SODIUM OXYBATE
     Indication: NARCOLEPSY
     Route: 048
     Dates: start: 201001, end: 201004
  2. OXYCODONE (OXYCODONE HYDROCHLORIDE) (OXYCODONE) [Concomitant]
     Active Substance: OXYCODONE

REACTIONS (5)
  - Ankylosing spondylitis [None]
  - Insomnia [None]
  - Intervertebral disc degeneration [None]
  - Oedema [None]
  - Condition aggravated [None]
